FAERS Safety Report 20651174 (Version 2)
Quarter: 2022Q1

REPORT INFORMATION
  Report Type: Spontaneous
  Country: None (occurrence: DE)
  Receive Date: 20220329
  Receipt Date: 20220330
  Transmission Date: 20220424
  Serious: Yes (Other)
  Sender: FDA-Public Use
  Company Number: DE-Ascend Therapeutics US, LLC-2127220

PATIENT
  Sex: Female

DRUGS (6)
  1. ESTROGEL [Suspect]
     Active Substance: ESTRADIOL
     Indication: Product used for unknown indication
     Route: 065
     Dates: end: 202110
  2. ESTROGEL [Suspect]
     Active Substance: ESTRADIOL
  3. ESTRADIOL HEMIHYDRATE [Suspect]
     Active Substance: ESTRADIOL HEMIHYDRATE
     Route: 065
     Dates: end: 202110
  4. ESTRADIOL HEMIHYDRATE [Suspect]
     Active Substance: ESTRADIOL HEMIHYDRATE
     Route: 065
  5. PROGESTERONE [Suspect]
     Active Substance: PROGESTERONE
     Route: 065
     Dates: end: 202110
  6. PROGESTERONE [Suspect]
     Active Substance: PROGESTERONE
     Route: 065
     Dates: end: 20220314

REACTIONS (11)
  - Syncope [Unknown]
  - Acidosis [Unknown]
  - Dyspepsia [Unknown]
  - Blood pressure decreased [Unknown]
  - Mental disorder [Unknown]
  - Aggression [Unknown]
  - Nervousness [Unknown]
  - Paraesthesia [Unknown]
  - Feeling abnormal [Unknown]
  - Depressed mood [Unknown]
  - Malabsorption from administration site [None]

NARRATIVE: CASE EVENT DATE: 20220301
